FAERS Safety Report 10573300 (Version 1)
Quarter: 2014Q4

REPORT INFORMATION
  Report Type: Spontaneous
  Country: IT (occurrence: None)
  Receive Date: 20141030
  Receipt Date: 20141030
  Transmission Date: 20150529
  Serious: Yes (Other)
  Sender: FDA-Public Use
  Company Number: PHHY2014IT048642

PATIENT
  Age: 55 Year
  Sex: Male

DRUGS (5)
  1. LANSOPRAZOLE (LANSOPRAZOLE) [Concomitant]
     Active Substance: LANSOPRAZOLE
  2. ACETYLSALICYLIC ACID (ACETYLSALICYLIC ACID) TABLET ? [Concomitant]
  3. TELBIVUDINE [Suspect]
     Active Substance: TELBIVUDINE
     Indication: CHRONIC HEPATITIS B
     Route: 048
     Dates: start: 20130808, end: 20131214
  4. TELBIVUDINE [Suspect]
     Active Substance: TELBIVUDINE
     Indication: RENAL FAILURE
     Route: 048
     Dates: start: 20130808, end: 20131214
  5. ERYTHROPOIETIN (ERYTHROPOIETIN) [Concomitant]

REACTIONS (3)
  - Blood creatine phosphokinase increased [None]
  - Myalgia [None]
  - Hypokinesia [None]

NARRATIVE: CASE EVENT DATE: 20131209
